FAERS Safety Report 9409389 (Version 1)
Quarter: 2013Q2

REPORT INFORMATION
  Report Type: Spontaneous
  Country: US (occurrence: None)
  Receive Date: 20130403
  Receipt Date: 20130403
  Transmission Date: 20140414
  Serious: Yes (Other)
  Sender: FDA-Public Use
  Company Number: 2013034987

PATIENT
  Sex: Male
  Weight: 21 kg

DRUGS (4)
  1. HIZENTRA (IMMUNOGLOBULIN HUMAN NORMAL) [Suspect]
     Indication: HYPOGAMMAGLOBULINAEMIA
     Dosage: 1 G 8X/MONTH, BEGINNING 18 MONTHS AGO; 5 ML OVER 15 MIN. 8 DOSES/ MTH AVE 4 D BETWEEN INFUSION SC
     Dates: start: 20130306, end: 20130306
  2. EMLA [Concomitant]
  3. MULTIVITAMIN (ACCOMIN MULTIVITAMIN) [Concomitant]
  4. ZANTAC (RANITIDINE HYDROCHLORIDE) [Concomitant]

REACTIONS (5)
  - Pneumonia [None]
  - Vomiting [None]
  - Epistaxis [None]
  - Contusion [None]
  - Gastroenteritis viral [None]
